FAERS Safety Report 12384106 (Version 1)
Quarter: 2016Q2

REPORT INFORMATION
  Report Type: Spontaneous
  Country: US (occurrence: None)
  Receive Date: 20160518
  Receipt Date: 20160518
  Transmission Date: 20160815
  Serious: Yes (Life-Threatening, Disabling)
  Sender: FDA-Public Use
  Company Number: None

PATIENT
  Age: 49 Year
  Sex: Male
  Weight: 83.92 kg

DRUGS (5)
  1. IBUPROFEN. [Concomitant]
     Active Substance: IBUPROFEN
  2. VITAMIN B12 [Concomitant]
     Active Substance: CYANOCOBALAMIN
  3. VITAMIN D [Concomitant]
     Active Substance: CHOLECALCIFEROL
  4. LEVOFLOXACIN, 500 MG AUROBINDO PHA [Suspect]
     Active Substance: LEVOFLOXACIN
     Indication: PROSTATITIS
     Dosage: 7 TABLETS ONCE A DAY
     Route: 048
     Dates: start: 20160413, end: 20160419
  5. PROPECIA [Concomitant]
     Active Substance: FINASTERIDE

REACTIONS (10)
  - Chills [None]
  - Tendon pain [None]
  - Eye pain [None]
  - Feeling abnormal [None]
  - Malaise [None]
  - Headache [None]
  - Photosensitivity reaction [None]
  - Heart rate irregular [None]
  - Muscle spasms [None]
  - Chest pain [None]

NARRATIVE: CASE EVENT DATE: 20160424
